FAERS Safety Report 12631849 (Version 2)
Quarter: 2016Q3

REPORT INFORMATION
  Report Type: Spontaneous
  Country: US (occurrence: US)
  Receive Date: 20160808
  Receipt Date: 20160808
  Transmission Date: 20161109
  Serious: No
  Sender: FDA-Public Use
  Company Number: US-BEH-2016061228

PATIENT
  Age: 60 Year
  Sex: Female
  Weight: 85 kg

DRUGS (15)
  1. DIPHENHYDRAMINE. [Concomitant]
     Active Substance: DIPHENHYDRAMINE
  2. ZYRTEC [Concomitant]
     Active Substance: CETIRIZINE HYDROCHLORIDE
  3. ATENOLOL. [Concomitant]
     Active Substance: ATENOLOL
  4. NAPROXEN. [Concomitant]
     Active Substance: NAPROXEN
  5. ALBUTEROL. [Concomitant]
     Active Substance: ALBUTEROL
  6. EPIPEN [Concomitant]
     Active Substance: EPINEPHRINE
  7. HIZENTRA [Suspect]
     Active Substance: HUMAN IMMUNOGLOBULIN G
     Indication: IMMUNODEFICIENCY COMMON VARIABLE
     Route: 058
  8. VITAMIN D [Concomitant]
     Active Substance: CHOLECALCIFEROL
  9. HIZENTRA [Suspect]
     Active Substance: HUMAN IMMUNOGLOBULIN G
     Route: 058
     Dates: start: 20141124
  10. LIDOCAINE. [Concomitant]
     Active Substance: LIDOCAINE
  11. HYDROCHLORTHIAZIDE [Concomitant]
     Active Substance: HYDROCHLOROTHIAZIDE
  12. MULTIVITAMIN [Concomitant]
     Active Substance: VITAMINS
  13. HIZENTRA [Suspect]
     Active Substance: HUMAN IMMUNOGLOBULIN G
     Route: 058
  14. ACETAMINOPHEN. [Concomitant]
     Active Substance: ACETAMINOPHEN
  15. FISH OIL [Concomitant]
     Active Substance: FISH OIL

REACTIONS (5)
  - Bronchitis [Unknown]
  - Drug administration error [Unknown]
  - Product container issue [Unknown]
  - Nasopharyngitis [Unknown]
  - Infusion site reaction [Unknown]

NARRATIVE: CASE EVENT DATE: 20160110
